FAERS Safety Report 5022251-8 (Version None)
Quarter: 2006Q2

REPORT INFORMATION
  Report Type: 
  Country: None (occurrence: None)
  Receive Date: 20060609
  Receipt Date: 20060531
  Transmission Date: 20061013
  Serious: Yes (Hospitalization)
  Sender: FDA-Public Use
  Company Number: JP-MERCK-0606USA00678

PATIENT
  Age: 77 Year
  Sex: Male
  Weight: 49 kg

DRUGS (3)
  1. COZAAR [Suspect]
     Indication: HYPERTENSION
     Route: 048
     Dates: start: 20001101, end: 20060522
  2. PANALDINE [Suspect]
     Indication: CEREBRAL THROMBOSIS
     Route: 048
     Dates: start: 20001116, end: 20060522
  3. NIVADIL [Concomitant]
     Indication: HYPERTENSION
     Route: 048
     Dates: start: 20050706, end: 20060522

REACTIONS (5)
  - DRUG DOSE OMISSION [None]
  - FALL [None]
  - OVERDOSE [None]
  - RHABDOMYOLYSIS [None]
  - TREATMENT NONCOMPLIANCE [None]
